FAERS Safety Report 15242530 (Version 1)
Quarter: 2018Q3

REPORT INFORMATION
  Report Type: Spontaneous
  Country: US (occurrence: US)
  Receive Date: 20180806
  Receipt Date: 20180806
  Transmission Date: 20181010
  Serious: Yes (Other)
  Sender: FDA-Public Use
  Company Number: US-CIPLA (EU) LIMITED-2018US20373

PATIENT

DRUGS (12)
  1. BUTORPHANOL [Suspect]
     Active Substance: BUTORPHANOL
     Indication: SUNCT SYNDROME
     Dosage: UNK
     Route: 045
  2. INDOMETHACIN                       /00003801/ [Suspect]
     Active Substance: INDOMETHACIN
     Indication: SUNCT SYNDROME
     Dosage: UNK
     Route: 065
  3. MELATONIN [Suspect]
     Active Substance: MELATONIN
     Dosage: UNK
     Route: 065
  4. GABAPENTIN. [Suspect]
     Active Substance: GABAPENTIN
     Dosage: 900 MG, UNK, AT BED TIME, FOR 3 WEEKS (DOSE INCREASED)
     Route: 065
  5. LIDOCAINE                          /00033402/ [Suspect]
     Active Substance: LIDOCAINE
     Indication: SUNCT SYNDROME
     Dosage: UNK
     Route: 061
  6. MELATONIN [Suspect]
     Active Substance: MELATONIN
     Indication: SUNCT SYNDROME
     Dosage: 20 MG, UNK, FOR 3 WEEKS
     Route: 065
  7. VERAPAMIL [Suspect]
     Active Substance: VERAPAMIL HYDROCHLORIDE
     Indication: SUNCT SYNDROME
     Dosage: UNK
     Route: 065
  8. GABAPENTIN. [Suspect]
     Active Substance: GABAPENTIN
     Indication: SUNCT SYNDROME
     Dosage: 300 MG, UNK, AT BED TIME
     Route: 065
  9. GABAPENTIN. [Suspect]
     Active Substance: GABAPENTIN
     Dosage: UNK
     Route: 065
  10. LAMOTRIGINE. [Suspect]
     Active Substance: LAMOTRIGINE
     Indication: SUNCT SYNDROME
     Dosage: UNK
     Route: 065
  11. TOPIRAMATE. [Suspect]
     Active Substance: TOPIRAMATE
     Indication: SUNCT SYNDROME
     Dosage: UNK
     Route: 065
  12. ZOLMITRIPTAN. [Suspect]
     Active Substance: ZOLMITRIPTAN
     Indication: SUNCT SYNDROME
     Dosage: UNK
     Route: 045

REACTIONS (2)
  - Drug ineffective [Unknown]
  - Cognitive disorder [Unknown]
